FAERS Safety Report 10044585 (Version 2)
Quarter: 2014Q1

REPORT INFORMATION
  Report Type: Spontaneous
  Country: FR (occurrence: FR)
  Receive Date: 20140328
  Receipt Date: 20140328
  Transmission Date: 20141002
  Serious: Yes (Hospitalization)
  Sender: FDA-Public Use
  Company Number: FR-SA-2013SA136583

PATIENT
  Age: 60 Year
  Sex: Male
  Weight: 96 kg

DRUGS (5)
  1. ELOXATINE [Suspect]
     Indication: COLORECTAL CANCER METASTATIC
     Route: 042
     Dates: start: 20131203, end: 20131203
  2. DOLIPRANE [Concomitant]
     Route: 048
  3. INEXIUM [Concomitant]
     Route: 048
  4. VALSARTAN [Concomitant]
     Route: 048
  5. HYDROCHLOROTHIAZIDE [Concomitant]
     Route: 048

REACTIONS (3)
  - Hyperkalaemia [Recovered/Resolved]
  - Blood creatinine increased [Recovered/Resolved]
  - Renal failure acute [Recovered/Resolved]
